FAERS Safety Report 22139496 (Version 1)
Quarter: 2023Q1

REPORT INFORMATION
  Report Type: Spontaneous
  Country: US (occurrence: US)
  Receive Date: 20230327
  Receipt Date: 20230327
  Transmission Date: 20230417
  Serious: No
  Sender: FDA-Public Use
  Company Number: ALC2022US001900

PATIENT

DRUGS (8)
  1. PATADAY ONCE DAILY RELIEF [Suspect]
     Active Substance: OLOPATADINE HYDROCHLORIDE
     Indication: Product used for unknown indication
     Dosage: 1 DRP IN MY EYES WHILE IN BED
     Route: 047
     Dates: start: 20220414
  2. PATADAY ONCE DAILY RELIEF [Suspect]
     Active Substance: OLOPATADINE HYDROCHLORIDE
     Dosage: 1 DRP IN MY EYESWHILE IN BED
     Route: 047
     Dates: start: 20220414
  3. PATADAY ONCE DAILY RELIEF [Suspect]
     Active Substance: OLOPATADINE HYDROCHLORIDE
     Dosage: 1 DRP IN MY EYESWHILE IN BED
     Route: 047
     Dates: start: 20220414, end: 20220420
  4. PATADAY ONCE DAILY RELIEF [Suspect]
     Active Substance: OLOPATADINE HYDROCHLORIDE
     Dosage: 1 DRP IN MY EYESWHILE IN BED
     Route: 047
  5. PATADAY ONCE DAILY RELIEF [Suspect]
     Active Substance: OLOPATADINE HYDROCHLORIDE
     Dosage: 1 DRP IN MY EYESWHILE IN BED
     Route: 047
  6. PATADAY ONCE DAILY RELIEF [Suspect]
     Active Substance: OLOPATADINE HYDROCHLORIDE
     Dosage: 1 DRP IN MY EYESWHILE IN BED
     Route: 047
     Dates: end: 20220420
  7. PATADAY ONCE DAILY RELIEF [Suspect]
     Active Substance: OLOPATADINE HYDROCHLORIDE
     Dosage: 1 DRP IN MY EYESWHILE IN BED
     Route: 047
     Dates: end: 20220420
  8. PATADAY ONCE DAILY RELIEF [Suspect]
     Active Substance: OLOPATADINE HYDROCHLORIDE
     Dosage: UNK
     Route: 047

REACTIONS (3)
  - Visual impairment [Recovered/Resolved]
  - Eye discharge [Recovered/Resolved]
  - Vision blurred [Recovered/Resolved]

NARRATIVE: CASE EVENT DATE: 20220414
